FAERS Safety Report 4579950-1 (Version None)
Quarter: 2005Q1

REPORT INFORMATION
  Report Type: 
  Country: None (occurrence: None)
  Receive Date: 20050214
  Receipt Date: 20050203
  Transmission Date: 20050727
  Serious: Yes (Hospitalization)
  Sender: FDA-Public Use
  Company Number: FI-BRISTOL-MYERS SQUIBB COMPANY-12850954

PATIENT
  Age: 81 Year
  Sex: Male

DRUGS (7)
  1. HYDREA [Suspect]
     Indication: ESSENTIAL THROMBOCYTHAEMIA
     Route: 048
     Dates: start: 20041224, end: 20041224
  2. PREDNISOLONE [Concomitant]
  3. ENALAPRIL MALEATE [Concomitant]
  4. DILTIAZEM HCL [Concomitant]
  5. ISOSORBIDE MONONITRATE [Concomitant]
  6. BRICANYL [Concomitant]
  7. SYMBICORT [Concomitant]

REACTIONS (3)
  - CHEST PAIN [None]
  - DYSPNOEA [None]
  - PYREXIA [None]
